FAERS Safety Report 5075202-4 (Version None)
Quarter: 2006Q3

REPORT INFORMATION
  Report Type: 
  Country: None (occurrence: None)
  Receive Date: 20060714
  Receipt Date: 20060418
  Transmission Date: 20061208
  Serious: No
  Sender: FDA-Public Use
  Company Number: 2006SP001734

PATIENT
  Age: 48 Year
  Sex: Male
  Weight: 81.6475 kg

DRUGS (4)
  1. LUNESTA [Suspect]
     Indication: INITIAL INSOMNIA
     Dosage: SEE IMAGE
     Route: 048
     Dates: start: 20060201, end: 20060201
  2. LUNESTA [Suspect]
     Indication: INITIAL INSOMNIA
     Dosage: SEE IMAGE
     Route: 048
     Dates: start: 20060201
  3. MELATONIN [Concomitant]
  4. MULTIVITAMIN [Concomitant]

REACTIONS (3)
  - DRY MOUTH [None]
  - DYSGEUSIA [None]
  - INSOMNIA [None]
